FAERS Safety Report 13881469 (Version 1)
Quarter: 2017Q3

REPORT INFORMATION
  Report Type: Spontaneous
  Country: US (occurrence: US)
  Receive Date: 20170818
  Receipt Date: 20170818
  Transmission Date: 20171127
  Serious: No
  Sender: FDA-Public Use
  Company Number: US-AMGEN-USASP2017122966

PATIENT
  Sex: Male

DRUGS (4)
  1. MTX [Suspect]
     Active Substance: METHOTREXATE SODIUM
     Indication: PRODUCT USED FOR UNKNOWN INDICATION
     Dosage: 6 TABLETS WEEKLY
     Route: 065
  2. MEDROL [Suspect]
     Active Substance: METHYLPREDNISOLONE
     Indication: PRODUCT USED FOR UNKNOWN INDICATION
     Dosage: 4 MG, UNK
     Route: 065
  3. PROMETHAZINE WITH CODEINE [Suspect]
     Active Substance: CODEINE PHOSPHATE\PROMETHAZINE HYDROCHLORIDE
     Indication: PRODUCT USED FOR UNKNOWN INDICATION
     Dosage: 6.25 MG-10MG/5 ML
     Route: 065
  4. ENBREL [Suspect]
     Active Substance: ETANERCEPT
     Indication: PRODUCT USED FOR UNKNOWN INDICATION
     Dosage: UNK
     Route: 065

REACTIONS (17)
  - Nausea [Unknown]
  - Hypoaesthesia [Unknown]
  - Musculoskeletal pain [Unknown]
  - Tenosynovitis [Unknown]
  - Musculoskeletal stiffness [Unknown]
  - Injection site pain [Unknown]
  - Muscular weakness [Unknown]
  - Blood pressure increased [Unknown]
  - Injection site rash [Unknown]
  - Therapy non-responder [Unknown]
  - Raynaud^s phenomenon [Unknown]
  - Arthralgia [Unknown]
  - Joint stiffness [Unknown]
  - Fatigue [Unknown]
  - Joint swelling [Unknown]
  - Synovitis [Unknown]
  - Pain [Unknown]
